FAERS Safety Report 23270285 (Version 1)
Quarter: 2023Q4

REPORT INFORMATION
  Report Type: Spontaneous
  Country: CN (occurrence: CN)
  Receive Date: 20231207
  Receipt Date: 20231207
  Transmission Date: 20240110
  Serious: Yes (Other)
  Sender: FDA-Public Use
  Company Number: CN-HUTCHMED LIMITED-HMP2023CN01845

PATIENT
  Age: 51 Year
  Sex: Female
  Weight: 47 kg

DRUGS (4)
  1. FRUQUINTINIB [Suspect]
     Active Substance: FRUQUINTINIB
     Indication: Gastric cancer
     Dosage: 3 MILLIGRAM
     Route: 048
     Dates: start: 20230614, end: 20231024
  2. PACLITAXEL [Suspect]
     Active Substance: PACLITAXEL
     Indication: Gastric cancer
     Dosage: 0.2 GRAM, Q3WEEKS
     Route: 041
     Dates: start: 20230614, end: 20230614
  3. PACLITAXEL [Suspect]
     Active Substance: PACLITAXEL
     Dosage: 0.2 GRAM, Q3WEEKS
     Route: 041
     Dates: start: 20231004, end: 20231004
  4. SINTILIMAB [Concomitant]
     Active Substance: SINTILIMAB
     Indication: Gastric cancer
     Dosage: 200 MILLIGRAM
     Route: 041
     Dates: start: 20230614, end: 20230614

REACTIONS (2)
  - Myelosuppression [Recovering/Resolving]
  - Off label use [Unknown]

NARRATIVE: CASE EVENT DATE: 20230614
